FAERS Safety Report 17547293 (Version 1)
Quarter: 2020Q1

REPORT INFORMATION
  Report Type: Spontaneous
  Country: US (occurrence: US)
  Receive Date: 20200316
  Receipt Date: 20200316
  Transmission Date: 20200409
  Serious: No
  Sender: FDA-Public Use
  Company Number: NVSC2020US073637

PATIENT
  Age: 75 Year
  Sex: Female

DRUGS (1)
  1. SIGNIFOR LAR [Suspect]
     Active Substance: PASIREOTIDE PAMOATE
     Indication: PITUITARY-DEPENDENT CUSHING^S SYNDROME
     Dosage: 60 MG, Q4W
     Route: 030

REACTIONS (4)
  - Blood glucose increased [Unknown]
  - Arthralgia [Unknown]
  - Intentional overdose [Unknown]
  - Vision blurred [Unknown]
